FAERS Safety Report 9804012 (Version 3)
Quarter: 2019Q1

REPORT INFORMATION
  Report Type: Spontaneous
  Country: FR (occurrence: FR)
  Receive Date: 20140108
  Receipt Date: 20190129
  Transmission Date: 20190418
  Serious: Yes (Hospitalization)
  Sender: FDA-Public Use
  Company Number: FR-PFIZER INC-2014001474

PATIENT
  Age: 47 Year
  Sex: Female
  Weight: 89 kg

DRUGS (9)
  1. STEDIRIL [ETHINYL ESTRADIOL\NORGESTREL] [Suspect]
     Active Substance: ETHINYL ESTRADIOL\NORGESTREL
     Dosage: UNK
     Route: 048
     Dates: start: 198404, end: 198410
  2. ANDROCUR [Suspect]
     Active Substance: CYPROTERONE ACETATE
     Indication: POLYCYSTIC OVARIES
     Dosage: 50 MG, DAILY
     Route: 048
     Dates: start: 198701, end: 198708
  3. ANDROCUR [Suspect]
     Active Substance: CYPROTERONE ACETATE
     Dosage: 12.5 MG, DAILY
     Route: 048
     Dates: start: 198810
  4. ANDROCUR [Suspect]
     Active Substance: CYPROTERONE ACETATE
     Dosage: 25 MG, 1X/DAY
     Route: 048
     Dates: start: 1987, end: 20130810
  5. OESTROGEL [Suspect]
     Active Substance: ESTRADIOL
     Dosage: 1 DF, EVERY 3 DAYS
     Route: 003
     Dates: start: 199209, end: 2013
  6. MINIDRIL [Suspect]
     Active Substance: ETHINYL ESTRADIOL\LEVONORGESTREL
     Dosage: UNK
     Route: 048
     Dates: start: 198609, end: 198610
  7. ANDROCUR [Suspect]
     Active Substance: CYPROTERONE ACETATE
     Dosage: 25 MG, DAILY
     Route: 048
     Dates: start: 198709
  8. CLOMIFENE [Concomitant]
     Active Substance: CLOMIPHENE
     Dosage: UNK
  9. PERINDOPRIL [Concomitant]
     Active Substance: PERINDOPRIL
     Indication: HYPERTENSION
     Dosage: 2 MG, DAILY
     Route: 048
     Dates: start: 2011

REACTIONS (1)
  - Meningioma [Not Recovered/Not Resolved]

NARRATIVE: CASE EVENT DATE: 201307
